FAERS Safety Report 7485445-8 (Version None)
Quarter: 2011Q2

REPORT INFORMATION
  Report Type: 
  Country: None (occurrence: None)
  Receive Date: 20110509
  Receipt Date: 20110427
  Transmission Date: 20111010
  Serious: Yes (Other)
  Sender: FDA-Public Use
  Company Number: 2011001540

PATIENT
  Age: 63 Year
  Sex: Male

DRUGS (9)
  1. TARCEVA [Suspect]
     Indication: NON-SMALL CELL LUNG CANCER
     Dosage: (150 MG,1 X PER 2 DAY),ORAL
     Route: 048
     Dates: start: 20091204
  2. LOPERAMIDE HCL [Concomitant]
  3. MAGLAX (MAGNESIUM OXIDE) [Concomitant]
  4. APLACE (TROXIPIDE) [Concomitant]
  5. FAMOTIDINE [Concomitant]
  6. PREDNISOLONE [Concomitant]
  7. FERROMIA (FERROUS CITRATE) [Concomitant]
  8. ALLOPURINOL [Concomitant]
  9. BISOPROLOL FUMARATE [Concomitant]

REACTIONS (5)
  - DIARRHOEA [None]
  - PROTEINURIA [None]
  - RENAL IMPAIRMENT [None]
  - HAEMATOCRIT DECREASED [None]
  - CONSTIPATION [None]
